FAERS Safety Report 5191925-0 (Version None)
Quarter: 2006Q4

REPORT INFORMATION
  Report Type: 
  Country: None (occurrence: None)
  Receive Date: 20061220
  Receipt Date: 20061205
  Transmission Date: 20070319
  Serious: Yes (Hospitalization)
  Sender: FDA-Public Use
  Company Number: 02100-JPN-06-0517

PATIENT
  Age: 63 Year
  Sex: Male

DRUGS (4)
  1. CILOSTAZOL [Suspect]
     Indication: CEREBRAL INFARCTION
     Dosage: ONE OF 200 MG OR 81 MG ORAL
     Route: 048
     Dates: start: 20050726, end: 20061030
  2. VOGLIBOSE [Concomitant]
  3. GLIMEPIRIDE [Concomitant]
  4. ASPIRIN [Suspect]

REACTIONS (9)
  - ACCIDENT [None]
  - ALCOHOL USE [None]
  - BRAIN CONTUSION [None]
  - FALL [None]
  - GAIT DISTURBANCE [None]
  - HEAD BANGING [None]
  - SKULL FRACTURE [None]
  - SUBARACHNOID HAEMORRHAGE [None]
  - TRAUMATIC HAEMORRHAGE [None]
